FAERS Safety Report 9236823 (Version 2)
Quarter: 2013Q2

REPORT INFORMATION
  Report Type: Spontaneous
  Country: US (occurrence: US)
  Receive Date: 20130417
  Receipt Date: 20130508
  Transmission Date: 20140414
  Serious: Yes (Other)
  Sender: FDA-Public Use
  Company Number: US-ASTRAZENECA-2013SE21276

PATIENT
  Age: 74 Year
  Sex: Female
  Weight: 86.2 kg

DRUGS (10)
  1. LISINOPRIL [Suspect]
     Indication: HYPERTENSION
     Route: 048
     Dates: start: 2003
  2. LISINOPRIL [Suspect]
     Indication: HYPERTENSION
     Route: 048
     Dates: start: 201212
  3. LISINOPRIL [Suspect]
     Indication: HYPERTENSION
     Dosage: 20 MG DAILY FOUR DAYS PER WEEK AND 10 MG DAILY THREE DAYS PER WEEK
     Route: 048
  4. CRESTOR [Suspect]
     Indication: BLOOD CHOLESTEROL INCREASED
     Route: 048
     Dates: start: 2003, end: 20130326
  5. LISINOPRIL(LUPIN) [Suspect]
     Indication: HYPERTENSION
     Dosage: 20 MG DAILY FOUR DAYS PER WEEK AND 10 MG DAILY THREE DAYS PER WEEK
     Route: 065
  6. VITAMINS [Concomitant]
  7. LORATADINE [Concomitant]
  8. FIORINAL [Concomitant]
  9. CALCIUM CARBONATES [Concomitant]
  10. ASPIRIN [Concomitant]

REACTIONS (12)
  - Myalgia [Recovered/Resolved]
  - Adverse event [Recovered/Resolved]
  - Gait disturbance [Recovering/Resolving]
  - Hypertension [Recovered/Resolved]
  - Back pain [Recovering/Resolving]
  - Spinal pain [Recovering/Resolving]
  - Insomnia [Recovering/Resolving]
  - Arthralgia [Recovering/Resolving]
  - Arthralgia [Recovering/Resolving]
  - Lethargy [Recovered/Resolved]
  - Off label use [Unknown]
  - Drug ineffective [Unknown]
